FAERS Safety Report 23648728 (Version 4)
Quarter: 2024Q3

REPORT INFORMATION
  Report Type: Report from Study
  Country: US (occurrence: US)
  Receive Date: 20240319
  Receipt Date: 20240720
  Transmission Date: 20241017
  Serious: Yes (Hospitalization)
  Sender: NOVARTIS
  Company Number: US-002147023-NVSC2024US058603

PATIENT
  Sex: Female

DRUGS (1)
  1. KESIMPTA [Suspect]
     Active Substance: OFATUMUMAB
     Indication: Product used for unknown indication
     Dosage: 20 MG, QMO
     Route: 058

REACTIONS (9)
  - Visual impairment [Unknown]
  - Rhinorrhoea [Unknown]
  - Cough [Unknown]
  - Oropharyngeal pain [Unknown]
  - Ear discomfort [Unknown]
  - Fall [Unknown]
  - Limb injury [Unknown]
  - Lacrimation increased [Unknown]
  - Product dose omission in error [Unknown]
